FAERS Safety Report 24378503 (Version 1)
Quarter: 2024Q3

REPORT INFORMATION
  Report Type: Spontaneous
  Country: CA (occurrence: CA)
  Receive Date: 20240930
  Receipt Date: 20240930
  Transmission Date: 20241017
  Serious: Yes (Disabling, Other)
  Sender: AUROBINDO
  Company Number: CA-MLMSERVICE-20240913-PI191617-00218-3

PATIENT
  Age: 6 Year
  Sex: Male

DRUGS (3)
  1. METHOTREXATE [Suspect]
     Active Substance: METHOTREXATE
     Indication: B precursor type acute leukaemia
     Dosage: MAINTENANCE (ORAL MTX 20 OR 40 MG/M2 ON DAYS 8, 15, 22, 29, 36, 43, 50, 57, 64, 71, 78)
     Route: 048
  2. METHOTREXATE [Suspect]
     Active Substance: METHOTREXATE
     Dosage: INDUCTION (INTRATHECAL (IT) METHOTREXATE (MTX) ON DAY 8, 29); CONSOLIDATION (IT MTX ON DAY 1,8, 15);
     Route: 037
  3. METHOTREXATE [Suspect]
     Active Substance: METHOTREXATE
     Dosage: INTERIM MAINTENANCE (IV MTX 100 MG/M2 (+50/DOSE) ON DAY 1, 11, 21, 31, 41)/(IV MTX 100 MG/M2 (+50/M2
     Route: 042

REACTIONS (4)
  - Intellectual disability [Unknown]
  - Lennox-Gastaut syndrome [Recovering/Resolving]
  - Neurotoxicity [Unknown]
  - Confusional state [Unknown]
